FAERS Safety Report 10516423 (Version 2)
Quarter: 2014Q4

REPORT INFORMATION
  Report Type: Spontaneous
  Country: US (occurrence: US)
  Receive Date: 20141014
  Receipt Date: 20141231
  Transmission Date: 20150528
  Serious: Yes (Life-Threatening)
  Sender: FDA-Public Use
  Company Number: US-BAYER-2014-150073

PATIENT
  Age: 31 Year
  Sex: Female
  Weight: 47.62 kg

DRUGS (1)
  1. MIRENA [Suspect]
     Active Substance: LEVONORGESTREL
     Indication: CONTRACEPTION
     Dosage: 20 MCG/24HR, CONT
     Route: 015
     Dates: start: 20070216

REACTIONS (9)
  - Emotional distress [Not Recovered/Not Resolved]
  - Abdominal pain [None]
  - Device dislocation [None]
  - Device misuse [None]
  - Anxiety [Not Recovered/Not Resolved]
  - Injury [None]
  - General physical health deterioration [None]
  - Anhedonia [None]
  - Stress [Not Recovered/Not Resolved]

NARRATIVE: CASE EVENT DATE: 201111
